FAERS Safety Report 15016009 (Version 1)
Quarter: 2018Q2

REPORT INFORMATION
  Report Type: Spontaneous
  Country: FR (occurrence: FR)
  Receive Date: 20180615
  Receipt Date: 20180615
  Transmission Date: 20180711
  Serious: Yes (Hospitalization, Other)
  Sender: FDA-Public Use
  Company Number: PHHY2018FR007440

PATIENT
  Age: 8 Year
  Sex: Male

DRUGS (20)
  1. METHOTREXATE. [Suspect]
     Active Substance: METHOTREXATE
     Dosage: 1.2 MG, QD
     Route: 037
     Dates: start: 20180205
  2. ADRIBLASTINE [Suspect]
     Active Substance: DOXORUBICIN
     Indication: ACUTE LYMPHOCYTIC LEUKAEMIA
     Dosage: 20 MG, QD
     Route: 042
     Dates: start: 20180105
  3. PEGASPARGASE [Suspect]
     Active Substance: PEGASPARGASE
     Indication: ACUTE LYMPHOCYTIC LEUKAEMIA
     Dosage: 975 IU, QD
     Route: 042
     Dates: start: 20180108
  4. PEGASPARGASE [Suspect]
     Active Substance: PEGASPARGASE
     Dosage: 975 IU, QD
     Route: 042
     Dates: start: 20180108
  5. ARACYTINE [Suspect]
     Active Substance: CYTARABINE
     Dosage: 62.5 MG, QD
     Route: 042
     Dates: start: 20180215
  6. BACTRIM [Concomitant]
     Active Substance: SULFAMETHOXAZOLE\TRIMETHOPRIM
     Indication: INFECTION PROPHYLAXIS
     Route: 065
  7. ZOVIRAX [Concomitant]
     Active Substance: ACYCLOVIR
     Indication: PRODUCT USED FOR UNKNOWN INDICATION
     Route: 065
  8. APHERESIS PLATELET CONCENTRATE [Concomitant]
     Indication: PRODUCT USED FOR UNKNOWN INDICATION
     Route: 065
  9. VINCRISTINE [Suspect]
     Active Substance: VINCRISTINE
     Indication: ACUTE LYMPHOCYTIC LEUKAEMIA
     Dosage: 1.2 MG, QD
     Route: 042
     Dates: start: 20180105
  10. ADRIBLASTINE [Suspect]
     Active Substance: DOXORUBICIN
     Dosage: 20 MG, QD
     Route: 042
     Dates: start: 20180119
  11. ENDOXAN [Suspect]
     Active Substance: CYCLOPHOSPHAMIDE
     Indication: ACUTE LYMPHOCYTIC LEUKAEMIA
     Dosage: 840 MG, QD
     Route: 042
     Dates: start: 20180202
  12. DEXAMETHASONE. [Suspect]
     Active Substance: DEXAMETHASONE
     Dosage: 1 MG, QD
     Route: 048
     Dates: start: 20180127
  13. ARACYTINE [Suspect]
     Active Substance: CYTARABINE
     Indication: ACUTE LYMPHOCYTIC LEUKAEMIA
     Dosage: 62.5 MG, QD
     Route: 042
     Dates: start: 20180205
  14. TIORFAN [Concomitant]
     Active Substance: RACECADOTRIL
     Indication: PRODUCT USED FOR UNKNOWN INDICATION
     Route: 065
  15. DEXAMETHASONE. [Suspect]
     Active Substance: DEXAMETHASONE
     Indication: ACUTE LYMPHOCYTIC LEUKAEMIA
     Dosage: 1 MG, QD
     Route: 048
     Dates: start: 20180105
  16. TIOGUANINE [Suspect]
     Active Substance: THIOGUANINE ANHYDROUS
     Indication: ACUTE LYMPHOCYTIC LEUKAEMIA
     Dosage: 50 MG, QD
     Route: 048
     Dates: start: 20180203
  17. METHOTREXATE. [Suspect]
     Active Substance: METHOTREXATE
     Dosage: 1.2 MG, QD
     Route: 037
     Dates: start: 20180108
  18. ENDOXAN [Suspect]
     Active Substance: CYCLOPHOSPHAMIDE
     Dosage: 840 MG, QD
     Route: 042
     Dates: start: 20180202
  19. VINCRISTINE [Suspect]
     Active Substance: VINCRISTINE
     Dosage: 1.2 MG, QD
     Route: 042
     Dates: start: 20180119
  20. DIPROSONE [Concomitant]
     Active Substance: BETAMETHASONE DIPROPIONATE
     Indication: PHIMOSIS
     Dosage: UNK
     Route: 065

REACTIONS (1)
  - Toxic encephalopathy [Recovered/Resolved]

NARRATIVE: CASE EVENT DATE: 20180215
